FAERS Safety Report 24779714 (Version 2)
Quarter: 2025Q1

REPORT INFORMATION
  Report Type: Spontaneous
  Country: DE (occurrence: DE)
  Receive Date: 20241226
  Receipt Date: 20250113
  Transmission Date: 20250409
  Serious: Yes (Hospitalization, Other)
  Sender: BAUSCH AND LOMB
  Company Number: DE-BBM-DE-BBM-202404155

PATIENT
  Age: 40 Year
  Sex: Male

DRUGS (5)
  1. METRONIDAZOLE [Suspect]
     Active Substance: METRONIDAZOLE
     Indication: Clostridial infection
     Route: 065
  2. PIPERACILLIN SODIUM\TAZOBACTAM SODIUM [Concomitant]
     Active Substance: PIPERACILLIN SODIUM\TAZOBACTAM SODIUM
     Indication: Clostridial infection
  3. TIGECYCLINE [Concomitant]
     Active Substance: TIGECYCLINE
     Indication: Clostridial infection
  4. MEROPENEM [Concomitant]
     Active Substance: MEROPENEM
     Indication: Clostridial infection
  5. CLINDAMYCIN [Concomitant]
     Active Substance: CLINDAMYCIN
     Indication: Clostridial infection

REACTIONS (3)
  - Septic shock [Recovered/Resolved]
  - Intravascular haemolysis [Recovered/Resolved]
  - Muscle necrosis [Recovered/Resolved]
